FAERS Safety Report 5771061-2 (Version None)
Quarter: 2008Q2

REPORT INFORMATION
  Report Type: 
  Country: None (occurrence: None)
  Receive Date: 20080613
  Receipt Date: 20080519
  Transmission Date: 20081010
  Serious: No
  Sender: FDA-Public Use
  Company Number: US-ABBOTT-08P-163-0453675-00

PATIENT
  Sex: Male
  Weight: 19.976 kg

DRUGS (5)
  1. HUMIRA [Suspect]
     Indication: JUVENILE ARTHRITIS
     Route: 058
     Dates: start: 20080401
  2. LIDOCAINE [Concomitant]
     Indication: INJECTION SITE PAIN
     Dosage: WITH EACH INJECTION
     Dates: start: 20040101
  3. WARFARIN SODIUM [Concomitant]
     Indication: ANTICOAGULANT THERAPY
     Route: 048
     Dates: start: 20040101
  4. FOLIC ACID [Concomitant]
     Indication: VITAMIN SUPPLEMENTATION
     Route: 048
     Dates: start: 20040101
  5. PREDNISONE TAB [Concomitant]
     Indication: JUVENILE ARTHRITIS
     Route: 048
     Dates: start: 20080501

REACTIONS (1)
  - INJECTION SITE PAIN [None]
